FAERS Safety Report 7533289-0 (Version None)
Quarter: 2011Q2

REPORT INFORMATION
  Report Type: 
  Country: None (occurrence: None)
  Receive Date: 20110608
  Receipt Date: 20040427
  Transmission Date: 20111010
  Serious: Yes (Death)
  Sender: FDA-Public Use
  Company Number: PHFR2004GB01738

PATIENT
  Sex: Male

DRUGS (3)
  1. AMISULPRIDE [Concomitant]
     Indication: SCHIZOPHRENIA
     Dosage: 400 MG/DAY
     Dates: start: 20010301
  2. CLOZAPINE [Suspect]
     Indication: SCHIZOPHRENIA
     Dosage: 500 MG/DAY.
     Route: 048
     Dates: start: 19980101
  3. VENLAFAXINE [Concomitant]
     Indication: DEPRESSION
     Dosage: 750 MG/DAY
     Route: 048
     Dates: start: 20011001

REACTIONS (2)
  - PLEURAL DISORDER [None]
  - PNEUMONIA [None]
